FAERS Safety Report 5599857-0 (Version None)
Quarter: 2008Q1

REPORT INFORMATION
  Report Type: 
  Country: None (occurrence: None)
  Receive Date: 20080123
  Receipt Date: 20080118
  Transmission Date: 20080703
  Serious: Yes (Life-Threatening)
  Sender: FDA-Public Use
  Company Number: DE-BAYER-200811196GPV

PATIENT
  Sex: Female
  Weight: 65 kg

DRUGS (1)
  1. NEXAVAR [Suspect]
     Indication: FOLLICULAR THYROID CANCER
     Dosage: AS USED: 400 MG  UNIT DOSE: 200 MG
     Route: 048
     Dates: start: 20070910, end: 20071005

REACTIONS (1)
  - ACUTE HEPATIC FAILURE [None]
